FAERS Safety Report 9440694 (Version 5)
Quarter: 2014Q1

REPORT INFORMATION
  Report Type: Spontaneous
  Country: US (occurrence: US)
  Receive Date: 20130805
  Receipt Date: 20140109
  Transmission Date: 20141002
  Serious: Yes (Hospitalization)
  Sender: FDA-Public Use
  Company Number: US-PFIZER INC-2013225535

PATIENT
  Age: 84 Year
  Sex: Male
  Weight: 79.82 kg

DRUGS (17)
  1. CADUET [Suspect]
     Dosage: [AMLODIPINE BESILATE 10 MG]/[ATORVASTATIN CALCIUM 40 MG], DAILY
  2. LIPITOR [Suspect]
     Dosage: 40 MG, DAILY
  3. ATORVASTATIN CALCIUM [Suspect]
     Dosage: 40 MG, DAILY
  4. TEMAZEPAM [Concomitant]
     Indication: SLEEP DISORDER
     Dosage: 50 MG, AS NEEDED
     Route: 048
  5. TEMAZEPAM [Concomitant]
     Dosage: 15 MG, ONCE AT BEDTIME
  6. PANTOPRAZOLE [Concomitant]
     Dosage: 40 MG, ONCE A DAY
  7. ATENOLOL [Concomitant]
     Dosage: 50 MG, TWO TIMES A DAY
  8. COUMADINE [Concomitant]
     Dosage: 3 MG, FOUR TIMES A DAY
  9. COUMADINE [Concomitant]
     Dosage: UNK, 1X/DAY
  10. DIGOXIN [Concomitant]
     Dosage: 125 MG, ONCE A DAY
     Route: 048
  11. K-DUR [Concomitant]
     Dosage: 10 MG, TWO TIMES A DAY
  12. LASIX [Concomitant]
     Dosage: 40 MG, TWO TIMES A DAY
  13. OXYCODONE [Concomitant]
     Dosage: 20 MG, 2X/DAY
  14. NITROGLYCERIN [Concomitant]
     Indication: CHEST PAIN
     Dosage: 0.4 MG, UNK
  15. NITROGLYCERIN [Concomitant]
     Dosage: 40 MG, UNK
  16. IMDUR [Concomitant]
     Dosage: 30 MG, DAILY
  17. OXYCONTIN [Concomitant]
     Dosage: 5 MG, 2X/DAY

REACTIONS (3)
  - Hip fracture [Unknown]
  - Accident [Unknown]
  - Movement disorder [Unknown]
